FAERS Safety Report 20255547 (Version 1)
Quarter: 2021Q4

REPORT INFORMATION
  Report Type: Report from Study
  Country: US (occurrence: US)
  Receive Date: 20211230
  Receipt Date: 20211230
  Transmission Date: 20220303
  Serious: Yes (Hospitalization)
  Sender: FDA-Public Use
  Company Number: US-JNJFOC-A-US2017-159772

PATIENT
  Age: 65 Year
  Sex: Female
  Weight: 54.422 kg

DRUGS (6)
  1. OPSUMIT [Suspect]
     Active Substance: MACITENTAN
     Indication: Pulmonary hypertension
     Dosage: 10 MG, QD
     Route: 048
     Dates: start: 201709
  2. TYVASO [Suspect]
     Active Substance: TREPROSTINIL
     Indication: Product used for unknown indication
     Dosage: 8 BREATHS/MIN, QID
     Route: 055
  3. TYVASO [Suspect]
     Active Substance: TREPROSTINIL
     Dosage: 7 BREATHS/MIN, QID
     Route: 055
  4. TYVASO [Suspect]
     Active Substance: TREPROSTINIL
     Dosage: 6 BREATHS 4 TIMES DAILY
     Route: 055
  5. SILDENAFIL CITRATE [Concomitant]
     Active Substance: SILDENAFIL CITRATE
     Dosage: 20 MG, TID
     Dates: start: 20180106
  6. LIOTHYRONINE SODIUM [Concomitant]
     Active Substance: LIOTHYRONINE SODIUM
     Dosage: 7.5 MG, QD

REACTIONS (27)
  - Pneumonia [Unknown]
  - Pyrexia [Unknown]
  - Chills [Unknown]
  - Cough [Unknown]
  - Cardiomegaly [Unknown]
  - Oedema [Recovering/Resolving]
  - Weight decreased [Recovering/Resolving]
  - Abdominal discomfort [Unknown]
  - Insomnia [Not Recovered/Not Resolved]
  - Mania [Unknown]
  - Joint swelling [Unknown]
  - Syncope [Unknown]
  - Ligament injury [Unknown]
  - Pain [Unknown]
  - Diarrhoea [Recovered/Resolved]
  - Fatigue [Unknown]
  - Dizziness [Unknown]
  - Sinus disorder [Recovered/Resolved]
  - Dyspnoea [Recovered/Resolved]
  - Asthenia [Unknown]
  - Hypotension [Unknown]
  - Oropharyngeal pain [Unknown]
  - Upper-airway cough syndrome [Unknown]
  - Frequent bowel movements [Unknown]
  - Dyspnoea exertional [Not Recovered/Not Resolved]
  - Raynaud^s phenomenon [Not Recovered/Not Resolved]
  - Exercise tolerance decreased [Not Recovered/Not Resolved]

NARRATIVE: CASE EVENT DATE: 20170901
